FAERS Safety Report 7225398-0 (Version None)
Quarter: 2011Q1

REPORT INFORMATION
  Report Type: 
  Country: None (occurrence: None)
  Receive Date: 20110113
  Receipt Date: 20110104
  Transmission Date: 20110831
  Serious: Yes (Hospitalization)
  Sender: FDA-Public Use
  Company Number: FR-ASTRAZENECA-2011SE01186

PATIENT
  Age: 20332 Day
  Sex: Female

DRUGS (7)
  1. PROPOFAN [Suspect]
     Indication: MUSCULOSKELETAL PAIN
     Route: 048
     Dates: start: 20101112, end: 20101120
  2. VAXIGRIP [Suspect]
     Indication: IMMUNISATION
     Route: 058
     Dates: start: 20101108, end: 20101108
  3. LAMALINE [Suspect]
     Indication: MUSCULOSKELETAL PAIN
     Route: 048
     Dates: start: 20101112, end: 20101120
  4. VICTOSA [Concomitant]
  5. NEXIUM [Suspect]
     Indication: ABDOMINAL PAIN UPPER
     Route: 048
     Dates: start: 20101108, end: 20101120
  6. GLUCOPHAGE [Concomitant]
  7. COAPROVEL [Concomitant]

REACTIONS (2)
  - IDIOPATHIC THROMBOCYTOPENIC PURPURA [None]
  - GINGIVAL BLEEDING [None]
